FAERS Safety Report 12224652 (Version 1)
Quarter: 2016Q1

REPORT INFORMATION
  Report Type: Spontaneous
  Country: IT (occurrence: IT)
  Receive Date: 20160331
  Receipt Date: 20160331
  Transmission Date: 20160526
  Serious: Yes (Other)
  Sender: FDA-Public Use
  Company Number: IT-ROCHE-1734355

PATIENT
  Age: 29 Year
  Sex: Female

DRUGS (3)
  1. FEVARIN [Suspect]
     Active Substance: FLUVOXAMINE MALEATE
     Indication: PRODUCT USED FOR UNKNOWN INDICATION
     Dosage: 100 MG FILM-COATED TABLETS 30 TABLETS
     Route: 048
     Dates: start: 20160308, end: 20160308
  2. RIVOTRIL [Suspect]
     Active Substance: CLONAZEPAM
     Indication: PRODUCT USED FOR UNKNOWN INDICATION
     Dosage: 2.5 MG/ML ORAL DROPS, SOLUTION 10ML BOTTLE
     Route: 048
     Dates: start: 20160308, end: 20160308
  3. TOPAMAX [Suspect]
     Active Substance: TOPIRAMATE
     Indication: PRODUCT USED FOR UNKNOWN INDICATION
     Dosage: ^100 MG FILM-COATED TABLETS^ 60 TABLETS
     Route: 048
     Dates: start: 20160308, end: 20160308

REACTIONS (2)
  - Self injurious behaviour [Unknown]
  - Overdose [Unknown]

NARRATIVE: CASE EVENT DATE: 20160308
